FAERS Safety Report 15505513 (Version 2)
Quarter: 2018Q4

REPORT INFORMATION
  Report Type: Spontaneous
  Country: CH (occurrence: CH)
  Receive Date: 20181016
  Receipt Date: 20181016
  Transmission Date: 20190205
  Serious: Yes (Hospitalization)
  Sender: FDA-Public Use
  Company Number: CH-TEVA-2018-CH-962782

PATIENT
  Age: 84 Year
  Sex: Female

DRUGS (3)
  1. IBUPROFEN. [Suspect]
     Active Substance: IBUPROFEN
     Route: 065
  2. PONSTAN [Suspect]
     Active Substance: MEFENAMIC ACID
     Indication: PAIN
     Dosage: IF NECESSARY
     Route: 048
  3. BETASERC [Concomitant]
     Active Substance: BETAHISTINE
     Dosage: IF NECESSARY
     Route: 048

REACTIONS (9)
  - Syncope [Recovering/Resolving]
  - Nausea [Recovering/Resolving]
  - Melaena [Recovering/Resolving]
  - Haematemesis [Recovering/Resolving]
  - Hypovolaemic shock [Recovering/Resolving]
  - Gastric ulcer [Recovering/Resolving]
  - Haematemesis [Recovering/Resolving]
  - Duodenal ulcer [Recovering/Resolving]
  - Vertigo [Recovering/Resolving]

NARRATIVE: CASE EVENT DATE: 2018
